FAERS Safety Report 15283569 (Version 1)
Quarter: 2018Q3

REPORT INFORMATION
  Report Type: Spontaneous
  Country: CA (occurrence: CA)
  Receive Date: 20180816
  Receipt Date: 20180816
  Transmission Date: 20181010
  Serious: Yes (Hospitalization)
  Sender: FDA-Public Use
  Company Number: CA-CELLTRION INC.-2018CA018254

PATIENT

DRUGS (11)
  1. INFLECTRA [Suspect]
     Active Substance: INFLIXIMAB-DYYB
     Dosage: 525 MG, CYCLIC (WEEKS 0, 2, 6 THEN Q 8 WEEKS)
     Route: 042
     Dates: start: 20180216
  2. INFLECTRA [Suspect]
     Active Substance: INFLIXIMAB-DYYB
     Dosage: 525 MG, EVERY 4 WEEKS;
     Route: 042
     Dates: start: 20180707
  3. INFLECTRA [Suspect]
     Active Substance: INFLIXIMAB-DYYB
     Dosage: 525 MG, CYCLIC (WEEKS 0, 2, 6 THEN Q 8 WEEKS)
     Route: 042
     Dates: start: 20180118
  4. INFLECTRA [Suspect]
     Active Substance: INFLIXIMAB-DYYB
     Dosage: 525 MG, EVERY 4 WEEKS;
     Route: 065
     Dates: start: 20180803
  5. INFLECTRA [Suspect]
     Active Substance: INFLIXIMAB-DYYB
     Indication: COLITIS ULCERATIVE
     Dosage: 525 MG, CYCLIC (WEEKS 0, 2, 6 THEN Q 8 WEEKS)
     Route: 042
     Dates: start: 20180103
  6. INFLECTRA [Suspect]
     Active Substance: INFLIXIMAB-DYYB
     Dosage: 525 MG, CYCLIC (EACH 0, 2  6 WEEKS THEN Q 8 WEEKS)
     Route: 042
     Dates: start: 20180608
  7. PENTASA [Concomitant]
     Active Substance: MESALAMINE
     Dosage: 1000 MG, BID
     Dates: start: 20171019
  8. ASPIRIN                            /00002701/ [Concomitant]
     Active Substance: ASPIRIN
     Dosage: 81 MG, DAILY
     Route: 048
  9. SULFASALAZINE. [Concomitant]
     Active Substance: SULFASALAZINE
     Dosage: 8 DF, DAILY
     Route: 048
     Dates: start: 1985
  10. INFLECTRA [Suspect]
     Active Substance: INFLIXIMAB-DYYB
     Dosage: 525 MG, CYCLIC (WEEKS 0, 2, 6 THEN Q 8 WEEKS)
     Route: 042
     Dates: start: 20180216
  11. HYDROCORTISONE. [Concomitant]
     Active Substance: HYDROCORTISONE
     Dosage: UNK
     Dates: start: 20180608, end: 20180608

REACTIONS (7)
  - Ear infection [Unknown]
  - Blood pressure fluctuation [Not Recovered/Not Resolved]
  - Product use issue [Unknown]
  - Gingival bleeding [Unknown]
  - Dental restoration failure [Unknown]
  - Vertigo [Unknown]
  - Swelling [Unknown]

NARRATIVE: CASE EVENT DATE: 20180608
